FAERS Safety Report 6864251-9 (Version None)
Quarter: 2010Q3

REPORT INFORMATION
  Report Type: 
  Country: None (occurrence: None)
  Receive Date: 20100721
  Receipt Date: 20100720
  Transmission Date: 20110219
  Serious: Yes (Hospitalization, Other)
  Sender: FDA-Public Use
  Company Number: US-MERCK-0902USA01609

PATIENT
  Age: 68 Year
  Sex: Female
  Weight: 64 kg

DRUGS (6)
  1. FOSAMAX [Suspect]
     Indication: OSTEOPENIA
     Route: 048
     Dates: start: 20060601, end: 20080731
  2. FOSAMAX [Suspect]
     Route: 048
     Dates: start: 20040101
  3. FOSAMAX [Suspect]
     Indication: OSTEOPOROSIS
     Route: 048
     Dates: start: 20060601, end: 20080731
  4. FOSAMAX [Suspect]
     Route: 048
     Dates: start: 20040101
  5. NORTRIPTYLINE [Concomitant]
     Indication: BACK PAIN
     Route: 065
     Dates: start: 19950101
  6. HYDROCODONE BITARTRATE AND ACETAMINOPHEN [Concomitant]
     Indication: BACK PAIN
     Route: 065
     Dates: start: 20010101

REACTIONS (24)
  - ADRENAL MASS [None]
  - ADVERSE DRUG REACTION [None]
  - ANXIETY [None]
  - ATAXIA [None]
  - BLOOD AMYLASE INCREASED [None]
  - CHEST PAIN [None]
  - DEPRESSION [None]
  - DIZZINESS [None]
  - DRUG HYPERSENSITIVITY [None]
  - ESSENTIAL HYPERTENSION [None]
  - GASTROOESOPHAGEAL REFLUX DISEASE [None]
  - GINGIVAL INFECTION [None]
  - GINGIVITIS [None]
  - HAEMATURIA [None]
  - IMPAIRED HEALING [None]
  - INSOMNIA [None]
  - NAUSEA [None]
  - NEPHROLITHIASIS [None]
  - OSTEONECROSIS OF JAW [None]
  - PERIODONTITIS [None]
  - PNEUMONIA [None]
  - PSORIASIS [None]
  - TOOTH DISORDER [None]
  - TOOTH FRACTURE [None]
